FAERS Safety Report 24703082 (Version 1)
Quarter: 2024Q4

REPORT INFORMATION
  Report Type: Spontaneous
  Country: RU (occurrence: RU)
  Receive Date: 20241205
  Receipt Date: 20241205
  Transmission Date: 20250114
  Serious: Yes (Death)
  Sender: PFIZER
  Company Number: RU-PFIZER INC-PV202400156608

PATIENT
  Age: 22 Year
  Sex: Male

DRUGS (1)
  1. BESPONSA [Suspect]
     Active Substance: INOTUZUMAB OZOGAMICIN
     Indication: Acute lymphocytic leukaemia
     Dosage: 1ST INJECTION AT DOSE 0.8 MG PER M2, 2D AND 3D - 0.5 MG PER M2
     Route: 042
     Dates: start: 202012, end: 202101

REACTIONS (6)
  - Neoplasm progression [Fatal]
  - Cytomegalovirus infection [Fatal]
  - Graft versus host disease [Fatal]
  - Graft versus host disease in skin [Fatal]
  - Graft versus host disease in gastrointestinal tract [Fatal]
  - Graft versus host disease in liver [Fatal]

NARRATIVE: CASE EVENT DATE: 20210801
